FAERS Safety Report 8305726-5 (Version None)
Quarter: 2012Q2

REPORT INFORMATION
  Report Type: 
  Country: None (occurrence: None)
  Receive Date: 20120418
  Receipt Date: 20120410
  Transmission Date: 20120825
  Serious: Yes (Other)
  Sender: FDA-Public Use
  Company Number: DAV-AE-ALP-12-17

PATIENT
  Age: 36 Year
  Sex: Male

DRUGS (7)
  1. DIAZEPAM [Concomitant]
  2. ETIZOLAM [Concomitant]
  3. PAROXETINE [Concomitant]
  4. SULPIRIDE [Concomitant]
  5. ALPRAZOLAM [Suspect]
     Indication: ANXIETY
  6. ALPRAZOLAM [Suspect]
     Indication: INSOMNIA
  7. ALPRAZOLAM [Suspect]
     Indication: DEPRESSION

REACTIONS (1)
  - BLEPHAROSPASM [None]
